FAERS Safety Report 12227406 (Version 2)
Quarter: 2016Q2

REPORT INFORMATION
  Report Type: Spontaneous
  Country: TR (occurrence: TR)
  Receive Date: 20160331
  Receipt Date: 20160426
  Transmission Date: 20160815
  Serious: Yes (Other)
  Sender: FDA-Public Use
  Company Number: PHHY2016TR038706

PATIENT
  Age: 64 Year
  Sex: Male

DRUGS (3)
  1. SANDOSTATIN LAR DEPOT [Suspect]
     Active Substance: OCTREOTIDE ACETATE
     Indication: INSULIN-LIKE GROWTH FACTOR INCREASED
     Dosage: 30 MG, QMO/EVERY 28 DAYS
     Route: 065
     Dates: start: 2002
  2. SANDOSTATIN LAR DEPOT [Suspect]
     Active Substance: OCTREOTIDE ACETATE
     Dosage: 20 MG, QMO/EVERY 28 DAYS
     Route: 065
  3. SANDOSTATIN LAR DEPOT [Suspect]
     Active Substance: OCTREOTIDE ACETATE
     Dosage: 10 MG, QMO/EVERY 28 DAYS
     Route: 065

REACTIONS (3)
  - Foot fracture [Not Recovered/Not Resolved]
  - Wound [Unknown]
  - Wrong technique in product usage process [Unknown]
